FAERS Safety Report 6319866-3 (Version None)
Quarter: 2009Q3

REPORT INFORMATION
  Report Type: 
  Country: None (occurrence: None)
  Receive Date: 20090822
  Receipt Date: 20081008
  Transmission Date: 20100115
  Serious: No
  Sender: FDA-Public Use
  Company Number: US-ABBOTT-08P-163-0480604-00

PATIENT
  Sex: Female
  Weight: 80.812 kg

DRUGS (8)
  1. NIASPAN [Suspect]
     Indication: BLOOD CHOLESTEROL INCREASED
     Dates: start: 20080601, end: 20080701
  2. NIASPAN [Suspect]
     Dates: start: 20080701, end: 20080901
  3. NIASPAN [Suspect]
  4. NIACIN [Suspect]
     Indication: DRUG USE FOR UNKNOWN INDICATION
     Dates: start: 20080928
  5. FLUVASTATIN [Suspect]
     Indication: BLOOD CHOLESTEROL INCREASED
     Route: 048
     Dates: end: 20081007
  6. METOPROLOL SUCCINATE [Concomitant]
     Indication: CARDIAC DISORDER
     Route: 048
  7. ASPIRIN [Concomitant]
     Indication: PROPHYLAXIS
     Route: 048
  8. LANCET INSULIN [Concomitant]
     Indication: DIABETES MELLITUS
     Dosage: 40U DAILY AT BEDTIME
     Route: 058

REACTIONS (1)
  - MUSCLE SPASMS [None]
